FAERS Safety Report 6959552-X (Version None)
Quarter: 2010Q3

REPORT INFORMATION
  Report Type: 
  Country: None (occurrence: None)
  Receive Date: 20100827
  Receipt Date: 20100817
  Transmission Date: 20110219
  Serious: Yes (Other)
  Sender: FDA-Public Use
  Company Number: 2010SP041148

PATIENT
  Age: 32 Year
  Sex: Female

DRUGS (2)
  1. DESLORATADINE [Suspect]
     Indication: SEASONAL ALLERGY
     Dosage: 1 DF;QD
     Dates: start: 20100201, end: 20100701
  2. KEPPRA [Concomitant]

REACTIONS (10)
  - ABDOMINAL DISCOMFORT [None]
  - DIARRHOEA [None]
  - DRUG EFFECT DECREASED [None]
  - EPILEPTIC AURA [None]
  - FATIGUE [None]
  - HEADACHE [None]
  - HOT FLUSH [None]
  - MYALGIA [None]
  - NAUSEA [None]
  - VERTIGO [None]
